FAERS Safety Report 7105678-X (Version None)
Quarter: 2010Q4

REPORT INFORMATION
  Report Type: 
  Country: None (occurrence: None)
  Receive Date: 20101116
  Receipt Date: 20101102
  Transmission Date: 20110411
  Serious: Yes (Hospitalization)
  Sender: FDA-Public Use
  Company Number: FR-AMGEN-FRASP2010003054

PATIENT

DRUGS (10)
  1. ENBREL [Suspect]
     Indication: RHEUMATOID ARTHRITIS
     Dosage: UNKNOWN
     Route: 058
     Dates: end: 20100301
  2. ARAVA [Suspect]
     Indication: PRODUCT USED FOR UNKNOWN INDICATION
     Dosage: UNKNOWN FROM AN UNKNOWN DATE TO MAR-2010
     Route: 048
     Dates: end: 20100301
  3. ARAVA [Suspect]
     Dosage: UNKNOWN FROM 27-MAY-2010
     Dates: start: 20100527
  4. ZOCOR [Concomitant]
     Dosage: UNKNOWN
  5. INIPOMP [Concomitant]
     Dosage: UNKNOWN
  6. APROVEL [Concomitant]
     Dosage: UNKNOWN
  7. PROZAC [Concomitant]
     Dosage: UNKNOWN
  8. ESIDRIX [Concomitant]
     Dosage: UNKNOWN
  9. LEVOTHYROXINE SODIUM [Concomitant]
     Dosage: UNKNOWN
  10. ATHYMIL [Concomitant]
     Dosage: UNKNOWN

REACTIONS (4)
  - ERYSIPELAS [None]
  - SKIN NECROSIS [None]
  - STAPHYLOCOCCAL SKIN INFECTION [None]
  - WOUND [None]
